FAERS Safety Report 6938043-6 (Version None)
Quarter: 2010Q3

REPORT INFORMATION
  Report Type: 
  Country: None (occurrence: None)
  Receive Date: 20100824
  Receipt Date: 20100812
  Transmission Date: 20110219
  Serious: Yes (Other)
  Sender: FDA-Public Use
  Company Number: US-RB-013435-10

PATIENT
  Age: 59 Year
  Sex: Male

DRUGS (1)
  1. MUCINEX [Suspect]
     Route: 048
     Dates: start: 20100810

REACTIONS (1)
  - HAEMOPTYSIS [None]
